FAERS Safety Report 6251679-3 (Version None)
Quarter: 2009Q2

REPORT INFORMATION
  Report Type: 
  Country: None (occurrence: None)
  Receive Date: 20090630
  Receipt Date: 20090625
  Transmission Date: 20091009
  Serious: Yes (Hospitalization)
  Sender: FDA-Public Use
  Company Number: DE-ABBOTT-09P-062-0581848-00

PATIENT
  Sex: Female

DRUGS (6)
  1. HUMIRA [Suspect]
     Indication: CROHN'S DISEASE
     Route: 058
     Dates: start: 20070701, end: 20090521
  2. HUMIRA [Suspect]
     Dates: start: 20090618
  3. CLAVASAL [Concomitant]
     Indication: CROHN'S DISEASE
  4. PENTASA [Concomitant]
     Indication: CROHN'S DISEASE
  5. CA++ [Concomitant]
     Indication: DRUG USE FOR UNKNOWN INDICATION
  6. SALOFALK [Concomitant]
     Indication: CROHN'S DISEASE
     Route: 054

REACTIONS (1)
  - COLOSTOMY [None]
